FAERS Safety Report 6143807-5 (Version None)
Quarter: 2009Q2

REPORT INFORMATION
  Report Type: 
  Country: None (occurrence: None)
  Receive Date: 20090403
  Receipt Date: 20090401
  Transmission Date: 20091009
  Serious: Yes (Death)
  Sender: FDA-Public Use
  Company Number: PHEH2009US03246

PATIENT
  Sex: Male

DRUGS (4)
  1. ZOMETA [Suspect]
  2. ARICEPT [Concomitant]
  3. NAMENDA [Concomitant]
  4. RISPERDAL [Concomitant]

REACTIONS (2)
  - ARTHRALGIA [None]
  - MYOCARDIAL INFARCTION [None]
